FAERS Safety Report 8134376-9 (Version None)
Quarter: 2012Q1

REPORT INFORMATION
  Report Type: 
  Country: None (occurrence: None)
  Receive Date: 20120103
  Receipt Date: 20111109
  Transmission Date: 20120608
  Serious: No
  Sender: FDA-Public Use
  Company Number: AE-2011-003253

PATIENT
  Age: 53 Year
  Sex: Female
  Weight: 66.6788 kg

DRUGS (3)
  1. INCIVEK [Suspect]
     Dosage: (750 MG, 7-9 HOURS), ORAL
     Route: 048
     Dates: start: 20111102
  2. RIBAVIRIN [Concomitant]
  3. PEG-INTRON [Concomitant]

REACTIONS (7)
  - HYPERHIDROSIS [None]
  - NAUSEA [None]
  - CHEST DISCOMFORT [None]
  - DECREASED APPETITE [None]
  - PYREXIA [None]
  - DIARRHOEA [None]
  - INCOHERENT [None]
